FAERS Safety Report 9129143 (Version 3)
Quarter: 2013Q2

REPORT INFORMATION
  Report Type: Report from Study
  Country: CR (occurrence: CR)
  Receive Date: 20130228
  Receipt Date: 20130515
  Transmission Date: 20140414
  Serious: Yes (Other)
  Sender: FDA-Public Use
  Company Number: CR-ROCHE-1196297

PATIENT
  Age: 65 Year
  Sex: Female

DRUGS (5)
  1. BONVIVA [Suspect]
     Indication: OSTEOPOROSIS
     Route: 048
     Dates: start: 20120830
  2. INSULIN [Concomitant]
     Indication: DIABETES MELLITUS
  3. IRBESARTAN [Concomitant]
     Indication: HYPERTENSION
  4. ASPIRIN [Concomitant]
     Indication: CARDIOVASCULAR EVENT PROPHYLAXIS
  5. LOVASTATIN [Concomitant]
     Indication: DYSLIPIDAEMIA

REACTIONS (1)
  - Upper limb fracture [Recovered/Resolved]
